FAERS Safety Report 19082228 (Version 1)
Quarter: 2021Q2

REPORT INFORMATION
  Report Type: Spontaneous
  Country: EG (occurrence: EG)
  Receive Date: 20210401
  Receipt Date: 20210401
  Transmission Date: 20210717
  Serious: Yes (Other)
  Sender: FDA-Public Use
  Company Number: EG-HIKMA PHARMACEUTICALS USA INC.-EG-H14001-21-01505

PATIENT
  Age: 60 Year
  Sex: Female

DRUGS (2)
  1. ADRICIN (DOXORUBICIN) [Suspect]
     Active Substance: DOXORUBICIN
     Indication: BREAST CANCER
     Route: 041
  2. ENDOXAN [Suspect]
     Active Substance: CYCLOPHOSPHAMIDE
     Indication: BREAST CANCER
     Route: 041

REACTIONS (6)
  - Neutropenia [Unknown]
  - Malaise [Unknown]
  - Bone pain [Unknown]
  - Headache [Unknown]
  - Vomiting [Unknown]
  - Leukopenia [Unknown]

NARRATIVE: CASE EVENT DATE: 20210116
